FAERS Safety Report 6383462-2 (Version None)
Quarter: 2009Q3

REPORT INFORMATION
  Report Type: 
  Country: None (occurrence: None)
  Receive Date: 20090928
  Receipt Date: 20090914
  Transmission Date: 20100115
  Serious: Yes (Other)
  Sender: FDA-Public Use
  Company Number: IDA-00265

PATIENT
  Age: 27 Year
  Sex: Female

DRUGS (3)
  1. INDERAL [Suspect]
     Indication: MIGRAINE
     Dosage: 40 MG BID / 80 MG BID
     Dates: start: 20090914
  2. EFFORTIL (ETILEFRINE HYDROCHLORIDE) [Concomitant]
  3. YAZ [Concomitant]

REACTIONS (3)
  - MIGRAINE [None]
  - SUICIDAL IDEATION [None]
  - TREMOR [None]
